FAERS Safety Report 19702312 (Version 1)
Quarter: 2021Q3

REPORT INFORMATION
  Report Type: Spontaneous
  Country: CA (occurrence: CA)
  Receive Date: 20210814
  Receipt Date: 20210814
  Transmission Date: 20211014
  Serious: Yes (Hospitalization)
  Sender: FDA-Public Use
  Company Number: CA-TEVA-395097USA

PATIENT
  Age: 59 Year
  Sex: Female

DRUGS (5)
  1. CYCLOPHOSPHAMIDE. [Suspect]
     Active Substance: CYCLOPHOSPHAMIDE
     Indication: INVASIVE LOBULAR BREAST CARCINOMA
     Dosage: 600MG/M2 FOR 4 CYCLES
     Route: 065
     Dates: start: 200701
  2. GEMCITABINE. [Suspect]
     Active Substance: GEMCITABINE
     Indication: INVASIVE LOBULAR BREAST CARCINOMA
     Route: 065
     Dates: start: 200703
  3. DOCETAXEL. [Suspect]
     Active Substance: DOCETAXEL
     Indication: INVASIVE LOBULAR BREAST CARCINOMA
     Dosage: 100MG/M2
     Route: 065
  4. DOXORUBICIN [Concomitant]
     Active Substance: DOXORUBICIN
     Indication: INVASIVE LOBULAR BREAST CARCINOMA
     Dosage: 60MG/M2 FOR 4 CYCLES
     Route: 065
     Dates: start: 200701
  5. PACLITAXEL. [Suspect]
     Active Substance: PACLITAXEL
     Dosage: 175MG/M2
     Route: 065
     Dates: start: 200703

REACTIONS (1)
  - Hypersensitivity pneumonitis [Recovered/Resolved]
